FAERS Safety Report 6580176-0 (Version None)
Quarter: 2010Q1

REPORT INFORMATION
  Report Type: 
  Country: None (occurrence: None)
  Receive Date: 20100212
  Receipt Date: 20100205
  Transmission Date: 20100710
  Serious: Yes (Hospitalization)
  Sender: FDA-Public Use
  Company Number: US-WATSON-2010-01375

PATIENT
  Sex: Female
  Weight: 96.2 kg

DRUGS (2)
  1. PREDNISONE TAB [Suspect]
     Indication: CHRONIC OBSTRUCTIVE PULMONARY DISEASE
     Dosage: 1 TABLET, QAM
     Route: 048
     Dates: start: 20091101
  2. PREDNISONE TAB [Suspect]
     Dosage: 1 TABLET, QAM
     Route: 048
     Dates: start: 20090401, end: 20091101

REACTIONS (11)
  - BACK PAIN [None]
  - BLOOD GLUCOSE INCREASED [None]
  - BLOOD PRESSURE INCREASED [None]
  - CHRONIC OBSTRUCTIVE PULMONARY DISEASE [None]
  - DIABETES MELLITUS [None]
  - DYSPNOEA [None]
  - HYPERCAPNIA [None]
  - OBESITY [None]
  - RESPIRATORY FAILURE [None]
  - SLEEP APNOEA SYNDROME [None]
  - WEIGHT INCREASED [None]
